FAERS Safety Report 7671254-3 (Version None)
Quarter: 2011Q3

REPORT INFORMATION
  Report Type: 
  Country: None (occurrence: None)
  Receive Date: 20110809
  Receipt Date: 20110725
  Transmission Date: 20111222
  Serious: Yes (Other)
  Sender: FDA-Public Use
  Company Number: US-ELI_LILLY_AND_COMPANY-US201107007988

PATIENT
  Age: 47 Year
  Sex: Male

DRUGS (1)
  1. CYMBALTA [Suspect]
     Indication: DEPRESSION
     Dosage: 30 MG, QD
     Dates: start: 20110601, end: 20110701

REACTIONS (21)
  - DIZZINESS [None]
  - HALLUCINATION, AUDITORY [None]
  - INSOMNIA [None]
  - PARAESTHESIA [None]
  - LETHARGY [None]
  - DISTURBANCE IN ATTENTION [None]
  - EMPHYSEMA [None]
  - CRYING [None]
  - IMPAIRED SELF-CARE [None]
  - ABDOMINAL PAIN UPPER [None]
  - ADVERSE EVENT [None]
  - DRUG INEFFECTIVE [None]
  - PARANOIA [None]
  - FEAR [None]
  - HALLUCINATION, VISUAL [None]
  - DRUG WITHDRAWAL SYNDROME [None]
  - MIDDLE INSOMNIA [None]
  - INTENTIONAL DRUG MISUSE [None]
  - PARALYSIS [None]
  - DYSPNOEA [None]
  - DEPRESSION [None]
